FAERS Safety Report 11233884 (Version 1)
Quarter: 2015Q3

REPORT INFORMATION
  Report Type: Report from Study
  Country: CA (occurrence: CA)
  Receive Date: 20150702
  Receipt Date: 20150702
  Transmission Date: 20151125
  Serious: Yes (Other)
  Sender: FDA-Public Use
  Company Number: CA-ABBVIE-15K-028-1418504-00

PATIENT
  Sex: Male

DRUGS (1)
  1. HUMIRA [Suspect]
     Active Substance: ADALIMUMAB
     Indication: CROHN^S DISEASE
     Route: 058
     Dates: start: 20140919

REACTIONS (3)
  - Hepatic steatosis [Not Recovered/Not Resolved]
  - Haemangioma [Not Recovered/Not Resolved]
  - Renal cyst [Not Recovered/Not Resolved]
